FAERS Safety Report 21265920 (Version 1)
Quarter: 2022Q3

REPORT INFORMATION
  Report Type: Spontaneous
  Country: US (occurrence: None)
  Receive Date: 20220828
  Receipt Date: 20220828
  Transmission Date: 20221026
  Serious: Yes (Disabling, Other)
  Sender: FDA-Public Use
  Company Number: None

PATIENT
  Age: 51 Year
  Sex: Male
  Weight: 83.25 kg

DRUGS (2)
  1. REGENEREYES LITE [Suspect]
     Active Substance: GLYCERIN
     Indication: Dry eye
     Dosage: FREQUENCY : TWICE A DAY;?
     Route: 047
     Dates: start: 20220607, end: 20220720
  2. REGENEREYES LITE [Suspect]
     Active Substance: GLYCERIN
     Indication: Eye inflammation

REACTIONS (14)
  - Product packaging issue [None]
  - Product use complaint [None]
  - Product container issue [None]
  - Product sterility issue [None]
  - Product prescribing issue [None]
  - Product use in unapproved indication [None]
  - Vision blurred [None]
  - Eye discharge [None]
  - Instillation site pain [None]
  - Eye irritation [None]
  - Dry eye [None]
  - Eye inflammation [None]
  - Condition aggravated [None]
  - Paradoxical drug reaction [None]

NARRATIVE: CASE EVENT DATE: 20220607
